FAERS Safety Report 4305606-6 (Version None)
Quarter: 2004Q1

REPORT INFORMATION
  Report Type: 
  Country: None (occurrence: None)
  Receive Date: 20040226
  Receipt Date: 20031211
  Transmission Date: 20041129
  Serious: Yes (Other)
  Sender: FDA-Public Use
  Company Number: US-BRISTOL-MYERS SQUIBB COMPANY-12456851

PATIENT
  Age: 75 Year
  Sex: Female

DRUGS (1)
  1. ABILIFY [Suspect]
     Dates: start: 20031101

REACTIONS (1)
  - HYPONATRAEMIA [None]
